FAERS Safety Report 4377717-0 (Version None)
Quarter: 2004Q2

REPORT INFORMATION
  Report Type: 
  Country: None (occurrence: None)
  Receive Date: 20040615
  Receipt Date: 20040608
  Transmission Date: 20050107
  Serious: Yes (Hospitalization)
  Sender: FDA-Public Use
  Company Number: GB-BRISTOL-MYERS SQUIBB COMPANY-12608071

PATIENT
  Age: 57 Year
  Sex: Female
  Weight: 66 kg

DRUGS (7)
  1. PACLITAXEL [Suspect]
     Indication: BREAST CANCER
     Route: 042
     Dates: start: 20040303, end: 20040303
  2. METOCLOPRAMIDE [Suspect]
     Dates: start: 20040303
  3. OMEPRAZOLE [Concomitant]
  4. BECONASE [Concomitant]
  5. FERROUS SULFATE TAB [Concomitant]
  6. ATENOLOL [Concomitant]
     Route: 048
  7. ACETAMINOPHEN [Concomitant]
     Route: 048

REACTIONS (2)
  - HEADACHE [None]
  - RESTLESS LEGS SYNDROME [None]
